FAERS Safety Report 17670391 (Version 1)
Quarter: 2020Q2

REPORT INFORMATION
  Report Type: Spontaneous
  Country: FR (occurrence: FR)
  Receive Date: 20200415
  Receipt Date: 20200415
  Transmission Date: 20200713
  Serious: Yes (Life-Threatening)
  Sender: FDA-Public Use
  Company Number: NVSC2020FR100358

PATIENT
  Age: 27 Year
  Sex: Male
  Weight: 57 kg

DRUGS (2)
  1. SERESTA [Suspect]
     Active Substance: OXAZEPAM
     Indication: PRODUCT USED FOR UNKNOWN INDICATION
     Route: 048
     Dates: start: 20190905, end: 20190905
  2. PARACETAMOL [Suspect]
     Active Substance: ACETAMINOPHEN
     Indication: PRODUCT USED FOR UNKNOWN INDICATION
     Dosage: 64 G, ONCE/SINGLE
     Route: 048
     Dates: start: 20190905, end: 20190905

REACTIONS (2)
  - Poisoning deliberate [Recovered/Resolved]
  - Hepatitis acute [Recovering/Resolving]

NARRATIVE: CASE EVENT DATE: 20190905
